FAERS Safety Report 17509298 (Version 2)
Quarter: 2020Q1

REPORT INFORMATION
  Report Type: Other
  Country: CA (occurrence: CA)
  Receive Date: 20200306
  Receipt Date: 20200310
  Transmission Date: 20200409
  Serious: Yes (Other)
  Sender: FDA-Public Use
  Company Number: CA-APOTEX-2020AP008122

PATIENT
  Age: 29 Year
  Sex: Male

DRUGS (1)
  1. MOXIFLOXACIN. [Suspect]
     Active Substance: MOXIFLOXACIN
     Indication: CHEST PAIN
     Dosage: 400 MG, QD
     Route: 048

REACTIONS (4)
  - Chest pain [Unknown]
  - Dyspnoea [Unknown]
  - Drug ineffective [Unknown]
  - Paraesthesia [Unknown]
